FAERS Safety Report 4344179-9 (Version None)
Quarter: 2004Q2

REPORT INFORMATION
  Report Type: 
  Country: None (occurrence: None)
  Receive Date: 20040422
  Receipt Date: 20040413
  Transmission Date: 20050107
  Serious: Yes (Other)
  Sender: FDA-Public Use
  Company Number: PHEH2004US04154

PATIENT
  Age: 72 Year
  Sex: Female

DRUGS (6)
  1. ZELNORM [Suspect]
     Indication: IRRITABLE BOWEL SYNDROME
     Dosage: 2 MG, QD
     Route: 048
     Dates: start: 20040401
  2. PHILLIPS MILK OF MAGNESIA [Suspect]
     Route: 048
  3. PROTONIX [Concomitant]
  4. MULTI-VITAMINS [Concomitant]
  5. TENORMIN [Concomitant]
  6. MAALOX [Concomitant]

REACTIONS (3)
  - DIARRHOEA [None]
  - DRUG INEFFECTIVE [None]
  - FAECES DISCOLOURED [None]
